FAERS Safety Report 7636523-1 (Version None)
Quarter: 2011Q3

REPORT INFORMATION
  Report Type: 
  Country: None (occurrence: None)
  Receive Date: 20110726
  Receipt Date: 20110720
  Transmission Date: 20111222
  Serious: Yes (Hospitalization, Other)
  Sender: FDA-Public Use
  Company Number: US-MERCK-0611USA06224

PATIENT
  Age: 68 Year
  Sex: Female

DRUGS (2)
  1. SINEMET [Concomitant]
     Indication: PARKINSON'S DISEASE
     Route: 048
     Dates: start: 19850101
  2. FOSAMAX [Suspect]
     Indication: OSTEOPOROSIS
     Route: 048
     Dates: start: 20020401, end: 20060101

REACTIONS (11)
  - OSTEONECROSIS OF JAW [None]
  - RADICULOPATHY [None]
  - TOOTH ABSCESS [None]
  - ADVERSE EVENT [None]
  - TOOTH DISORDER [None]
  - FISTULA DISCHARGE [None]
  - DEPRESSION [None]
  - OSTEOMYELITIS [None]
  - TOOTH FRACTURE [None]
  - ALVEOLAR OSTEITIS [None]
  - DENTAL CARIES [None]
